FAERS Safety Report 9478537 (Version 2)
Quarter: 2013Q3

REPORT INFORMATION
  Report Type: Spontaneous
  Country: US (occurrence: US)
  Receive Date: 20130827
  Receipt Date: 20130917
  Transmission Date: 20140515
  Serious: Yes (Other)
  Sender: FDA-Public Use
  Company Number: US-TEVA-428497USA

PATIENT
  Age: 37 Year
  Sex: Female
  Weight: 65.38 kg

DRUGS (1)
  1. PARAGARD 380A [Suspect]
     Indication: CONTRACEPTION
     Route: 015
     Dates: start: 20130614

REACTIONS (5)
  - Uterine perforation [Not Recovered/Not Resolved]
  - Dysfunctional uterine bleeding [Recovered/Resolved]
  - Uterine spasm [Not Recovered/Not Resolved]
  - Pain [Not Recovered/Not Resolved]
  - Menstruation irregular [Not Recovered/Not Resolved]
